FAERS Safety Report 6569673-1 (Version None)
Quarter: 2010Q1

REPORT INFORMATION
  Report Type: 
  Country: None (occurrence: None)
  Receive Date: 20100204
  Receipt Date: 20100122
  Transmission Date: 20100710
  Serious: Yes (Disabling)
  Sender: FDA-Public Use
  Company Number: PHHY2009JP56391

PATIENT
  Age: 55 Year
  Sex: Female

DRUGS (3)
  1. AREDIA [Suspect]
     Indication: METASTASES TO BONE
     Dosage: 90 MG, QMO
     Route: 042
     Dates: start: 20051201, end: 20060821
  2. ZOMETA [Suspect]
     Indication: METASTASES TO BONE
     Dosage: 4 MG, QMO
     Route: 042
     Dates: start: 20060921, end: 20080207
  3. PACLITAXEL [Concomitant]
     Indication: BREAST CANCER

REACTIONS (3)
  - BONE DISORDER [None]
  - DYSPHONIA [None]
  - OSTEONECROSIS [None]
